FAERS Safety Report 15025317 (Version 1)
Quarter: 2018Q2

REPORT INFORMATION
  Report Type: Spontaneous
  Country: US (occurrence: US)
  Receive Date: 20180618
  Receipt Date: 20180618
  Transmission Date: 20180711
  Serious: No
  Sender: FDA-Public Use
  Company Number: US-GALDERMA-US18004081

PATIENT
  Age: 56 Year
  Sex: Male

DRUGS (7)
  1. DORYX [Concomitant]
     Active Substance: DOXYCYCLINE HYCLATE
     Indication: SKIN BURNING SENSATION
  2. DORYX [Concomitant]
     Active Substance: DOXYCYCLINE HYCLATE
     Indication: SCAB
  3. DORYX [Concomitant]
     Active Substance: DOXYCYCLINE HYCLATE
     Indication: SWELLING FACE
  4. PROACTIV MD ADAPALENE ACNE TREATMENT [Suspect]
     Active Substance: ADAPALENE
     Indication: ACNE
     Dosage: 0.1%
     Route: 061
     Dates: start: 20180130, end: 20180224
  5. PROACTIV SOLUTION DAILY PROTECTION PLUS SUNSCREEN SPF 30 [Suspect]
     Active Substance: AVOBENZONE\HOMOSALATE\OCTINOXATE\OCTISALATE\OXYBENZONE
     Indication: ACNE
     Route: 061
     Dates: start: 20180130, end: 20180224
  6. PROACTIV MD DEEP CLEANSING FACE WASH [Concomitant]
     Active Substance: COSMETICS
     Indication: ACNE
     Route: 061
     Dates: start: 20180130, end: 20180224
  7. DORYX [Concomitant]
     Active Substance: DOXYCYCLINE HYCLATE
     Indication: FURUNCLE

REACTIONS (4)
  - Swelling face [Not Recovered/Not Resolved]
  - Furuncle [Not Recovered/Not Resolved]
  - Scab [Not Recovered/Not Resolved]
  - Skin burning sensation [Not Recovered/Not Resolved]

NARRATIVE: CASE EVENT DATE: 20180130
